FAERS Safety Report 4546762-4 (Version None)
Quarter: 2005Q1

REPORT INFORMATION
  Report Type: 
  Country: None (occurrence: None)
  Receive Date: 20050106
  Receipt Date: 20040618
  Transmission Date: 20050727
  Serious: Yes (Hospitalization)
  Sender: FDA-Public Use
  Company Number: JP-ABBOTT-04P-087-0264442-00

PATIENT
  Sex: Male
  Weight: 62.5 kg

DRUGS (11)
  1. CLARITH [Suspect]
     Indication: PNEUMONIA
     Route: 048
     Dates: start: 20040605, end: 20040618
  2. THIATON [Suspect]
     Indication: GASTRITIS
     Route: 048
     Dates: start: 20040612, end: 20040612
  3. THIATON [Suspect]
     Indication: ABDOMINAL PAIN UPPER
     Route: 048
     Dates: start: 20040615, end: 20040615
  4. FAMOTIDINE [Suspect]
     Indication: ABDOMINAL PAIN UPPER
     Route: 048
     Dates: start: 20040612, end: 20040612
  5. TSUMURA SEIHAITOU [Concomitant]
     Indication: PNEUMONIA
     Route: 048
     Dates: start: 20040605, end: 20040618
  6. DEXTROMETHORPHAN HYDROBROMIDE [Concomitant]
     Indication: PNEUMONIA
     Route: 048
     Dates: start: 20040605, end: 20040618
  7. WARFARIN POTASSIUM [Concomitant]
     Indication: DRUG USE FOR UNKNOWN INDICATION
     Route: 048
  8. MAGNESIUM OXIDE [Concomitant]
     Indication: DRUG USE FOR UNKNOWN INDICATION
     Route: 048
  9. SENNOSIDE [Concomitant]
     Indication: DRUG USE FOR UNKNOWN INDICATION
     Route: 048
  10. SOFALCONE [Concomitant]
     Indication: DRUG USE FOR UNKNOWN INDICATION
     Route: 048
  11. BROTIZOLAM [Concomitant]
     Indication: DRUG USE FOR UNKNOWN INDICATION
     Route: 048

REACTIONS (6)
  - ABDOMINAL PAIN UPPER [None]
  - ALANINE AMINOTRANSFERASE INCREASED [None]
  - ASPARTATE AMINOTRANSFERASE INCREASED [None]
  - DRUG ERUPTION [None]
  - LIVER DISORDER [None]
  - OEDEMA [None]
